FAERS Safety Report 9237261 (Version 2)
Quarter: 2015Q2

REPORT INFORMATION
  Report Type: Spontaneous
  Country: GB (occurrence: GB)
  Receive Date: 20130417
  Receipt Date: 20150512
  Transmission Date: 20150821
  Serious: Yes (Disabling)
  Sender: FDA-Public Use
  Company Number: GB-009507513-1304GBR007400

PATIENT
  Age: 65 Year
  Sex: Female
  Weight: 82.55 kg

DRUGS (6)
  1. ATORVASTATIN [Concomitant]
     Active Substance: ATORVASTATIN
  2. DIMETHYL SULFONE [Concomitant]
     Active Substance: DIMETHYL SULFONE
  3. CHONDROITIN SULFATE SODIUM (+) GLUCOSAMINE SULFATE [Concomitant]
  4. JANUVIA [Suspect]
     Active Substance: SITAGLIPTIN PHOSPHATE
     Indication: DIABETES MELLITUS INADEQUATE CONTROL
     Dosage: 100 MG, QD
     Route: 048
     Dates: start: 20130318, end: 20130403
  5. GINSENG (UNSPECIFIED) [Concomitant]
     Active Substance: ASIAN GINSENG
  6. METFORMIN HYDROCHLORIDE. [Concomitant]
     Active Substance: METFORMIN HYDROCHLORIDE

REACTIONS (3)
  - Condition aggravated [Recovering/Resolving]
  - Spondylitis [Recovering/Resolving]
  - Pain [Unknown]

NARRATIVE: CASE EVENT DATE: 20130401
